FAERS Safety Report 20988570 (Version 2)
Quarter: 2022Q3

REPORT INFORMATION
  Report Type: Report from Study
  Country: US (occurrence: US)
  Receive Date: 20220621
  Receipt Date: 20220712
  Transmission Date: 20221026
  Serious: Yes (Hospitalization, Other)
  Sender: FDA-Public Use
  Company Number: US-GILEAD-2022-0583276

PATIENT
  Sex: Male
  Weight: 66.213 kg

DRUGS (9)
  1. AMBRISENTAN [Suspect]
     Active Substance: AMBRISENTAN
     Indication: Product used for unknown indication
     Dosage: 10 MG
     Route: 065
     Dates: start: 20170320
  2. ALEVE [Concomitant]
     Active Substance: NAPROXEN SODIUM
  3. LASIX [Concomitant]
     Active Substance: FUROSEMIDE
  4. COLACE [Concomitant]
     Active Substance: DOCUSATE SODIUM
  5. FLONASE ALLERGY RELIEF [Concomitant]
     Active Substance: FLUTICASONE PROPIONATE
  6. NAMENDA [Concomitant]
     Active Substance: MEMANTINE HYDROCHLORIDE
  7. ASPIRIN [Concomitant]
     Active Substance: ASPIRIN
  8. KCL [Concomitant]
     Active Substance: POTASSIUM CHLORIDE
  9. CYANOCOBALAMIN [Concomitant]
     Active Substance: CYANOCOBALAMIN

REACTIONS (4)
  - Hypoxia [Not Recovered/Not Resolved]
  - Chronic respiratory failure [Not Recovered/Not Resolved]
  - Oxygen saturation decreased [Unknown]
  - Cardiac failure congestive [Unknown]
